FAERS Safety Report 8911298 (Version 1)
Quarter: 2012Q4

REPORT INFORMATION
  Report Type: 
  Country: US (occurrence: US)
  Receive Date: 20121116
  Receipt Date: 20121116
  Transmission Date: 20130627
  Serious: No
  Sender: FDA-Public Use
  Company Number: US-GLAXOSMITHKLINE-A0995965A

PATIENT
  Age: 64 Year
  Sex: Male

DRUGS (8)
  1. VOTRIENT [Suspect]
     Indication: RENAL CELL CARCINOMA
     Dosage: 800MG Per day
     Route: 048
     Dates: start: 20120904
  2. COUMADIN [Concomitant]
  3. LEVOTHYROXINE [Concomitant]
  4. PROZAC [Concomitant]
  5. ZOFRAN [Concomitant]
  6. KEPPRA [Concomitant]
  7. REMERON [Concomitant]
  8. PRAVASTATIN [Concomitant]

REACTIONS (4)
  - Fatigue [Not Recovered/Not Resolved]
  - Decreased appetite [Unknown]
  - Blood creatinine increased [Unknown]
  - Nausea [Unknown]
